FAERS Safety Report 25112481 (Version 1)
Quarter: 2025Q1

REPORT INFORMATION
  Report Type: Spontaneous
  Country: PS (occurrence: PS)
  Receive Date: 20250324
  Receipt Date: 20250324
  Transmission Date: 20250408
  Serious: Yes (Congenital Anomaly, Other)
  Sender: GALDERMA
  Company Number: PS-MLMSERVICE-20250311-PI441660-00222-1

PATIENT

DRUGS (2)
  1. METRONIDAZOLE [Suspect]
     Active Substance: METRONIDAZOLE
     Indication: Product used for unknown indication
     Route: 065
  2. CEFTRIAXONE [Concomitant]
     Active Substance: CEFTRIAXONE
     Indication: Product used for unknown indication

REACTIONS (7)
  - Fibula agenesis [Unknown]
  - Spina bifida occulta [Unknown]
  - Maternal drugs affecting foetus [Recovered/Resolved]
  - Vomiting [Unknown]
  - Feeding disorder [Unknown]
  - Decreased activity [Unknown]
  - Foetal exposure during pregnancy [Recovered/Resolved]
